FAERS Safety Report 17431621 (Version 1)
Quarter: 2020Q1

REPORT INFORMATION
  Report Type: Spontaneous
  Country: FR (occurrence: FR)
  Receive Date: 20200218
  Receipt Date: 20200218
  Transmission Date: 20200409
  Serious: Yes (Death, Other)
  Sender: FDA-Public Use
  Company Number: NVSC2020FR042297

PATIENT
  Age: 64 Year
  Sex: Male

DRUGS (1)
  1. EXFORGE [Suspect]
     Active Substance: AMLODIPINE BESYLATE\VALSARTAN
     Indication: PRODUCT USED FOR UNKNOWN INDICATION
     Dosage: (90 TABLETS OF 5MG/80MG, ONCE)
     Route: 048
     Dates: start: 20200212, end: 20200212

REACTIONS (3)
  - Overdose [Fatal]
  - Cardiogenic shock [Fatal]
  - Suicide attempt [Fatal]

NARRATIVE: CASE EVENT DATE: 20200212
